FAERS Safety Report 7990161-X (Version None)
Quarter: 2011Q4

REPORT INFORMATION
  Report Type: 
  Country: None (occurrence: None)
  Receive Date: 20111219
  Receipt Date: 20101029
  Transmission Date: 20120403
  Serious: No
  Sender: FDA-Public Use
  Company Number: US-ASTRAZENECA-2010SE51710

PATIENT
  Sex: Female

DRUGS (2)
  1. METFORMIN HCL [Concomitant]
  2. CRESTOR [Suspect]
     Indication: BLOOD CHOLESTEROL INCREASED
     Route: 048
     Dates: start: 20101015, end: 20101029

REACTIONS (1)
  - URINARY TRACT INFECTION [None]
